FAERS Safety Report 10204206 (Version 1)
Quarter: 2014Q2

REPORT INFORMATION
  Report Type: Spontaneous
  Country: ES (occurrence: ES)
  Receive Date: 20140529
  Receipt Date: 20140529
  Transmission Date: 20141212
  Serious: Yes (Death)
  Sender: FDA-Public Use
  Company Number: ES-NOVOPROD-411281

PATIENT
  Age: 85 Year
  Sex: Female

DRUGS (6)
  1. INSULATARD FLEXPEN [Suspect]
     Indication: TYPE 2 DIABETES MELLITUS
     Dosage: UNK
     Route: 058
     Dates: start: 20110524, end: 20130222
  2. GLICLAZIDE [Suspect]
     Indication: DIABETES MELLITUS
     Dosage: 60 MG, QD
     Route: 048
     Dates: start: 20110524, end: 20130222
  3. FUROSEMIDE [Concomitant]
     Indication: CARDIAC FAILURE
     Dosage: 40 MG, QD
     Route: 048
     Dates: end: 20110222
  4. ENALAPRIL [Concomitant]
     Indication: HYPERTENSION
     Dosage: 20 MG, QD
     Route: 048
     Dates: start: 20110524, end: 20130222
  5. ACETYLSALICYLIC ACID [Concomitant]
     Indication: PROPHYLAXIS
     Dosage: 100 MG, QD
     Route: 048
     Dates: start: 20110524, end: 20130222
  6. BOI K [Concomitant]
     Dosage: 1 DF, QD
     Route: 048
     Dates: start: 20110524, end: 20130222

REACTIONS (2)
  - Metabolic encephalopathy [Fatal]
  - Hypoglycaemic coma [Fatal]
